FAERS Safety Report 10641368 (Version 2)
Quarter: 2014Q4

REPORT INFORMATION
  Report Type: Report from Study
  Country: MX (occurrence: MX)
  Receive Date: 20141209
  Receipt Date: 20141215
  Transmission Date: 20150529
  Serious: Yes (Other)
  Sender: FDA-Public Use
  Company Number: PHHY2014MX160841

PATIENT
  Sex: Female

DRUGS (2)
  1. RASILEZ [Suspect]
     Active Substance: ALISKIREN
     Indication: HYPERTENSION
     Dosage: 1 DF (150 MG), QD (A DAY)
     Route: 048
  2. AVARA [Concomitant]
     Indication: PRODUCT USED FOR UNKNOWN INDICATION
     Dosage: UNK DF, UNK
     Route: 065

REACTIONS (13)
  - Hypersensitivity [Recovered/Resolved]
  - Abasia [Unknown]
  - Dysuria [Unknown]
  - Dysstasia [Unknown]
  - Urticaria [Recovered/Resolved]
  - Memory impairment [Unknown]
  - Renal disorder [Unknown]
  - General physical health deterioration [Unknown]
  - Osteoporosis [Unknown]
  - Fluid retention [Unknown]
  - Blindness [Unknown]
  - Rheumatoid arthritis [Unknown]
  - Hypertension [Unknown]
